FAERS Safety Report 5468699-9 (Version None)
Quarter: 2007Q3

REPORT INFORMATION
  Report Type: 
  Country: None (occurrence: None)
  Receive Date: 20070926
  Receipt Date: 20070921
  Transmission Date: 20080115
  Serious: Yes (Death)
  Sender: FDA-Public Use
  Company Number: US-SANOFI-SYNTHELABO-A03200705684

PATIENT
  Age: 53 Year
  Sex: Male

DRUGS (3)
  1. OXALIPLATIN [Suspect]
     Indication: COLORECTAL CANCER STAGE III
     Route: 042
     Dates: start: 20070801, end: 20070801
  2. LEUCOVORIN [Suspect]
     Indication: COLORECTAL CANCER STAGE III
     Route: 042
     Dates: start: 20070801, end: 20070801
  3. FLUOROURACIL [Suspect]
     Indication: COLORECTAL CANCER STAGE III
     Route: 042
     Dates: start: 20070801, end: 20070801

REACTIONS (1)
  - DEATH [None]
